FAERS Safety Report 24059887 (Version 2)
Quarter: 2024Q4

REPORT INFORMATION
  Report Type: Spontaneous
  Country: US (occurrence: US)
  Receive Date: 20240708
  Receipt Date: 20241004
  Transmission Date: 20250114
  Serious: Yes (Other)
  Sender: SANOFI AVENTIS
  Company Number: US-SA-SAC20240704000724

PATIENT
  Age: 32 Year
  Sex: Male

DRUGS (2)
  1. ALTUVIIIO [Suspect]
     Active Substance: EFANESOCTOCOG ALFA
     Indication: Haemorrhage
     Dosage: 4950 UNITS (+/-10%) WEEKLY
     Route: 042
  2. ALTUVIIIO [Suspect]
     Active Substance: EFANESOCTOCOG ALFA
     Dosage: 4950 UNITS (+/-10%), PRN (AS NEEDED)
     Route: 042

REACTIONS (4)
  - Arthrodesis [Unknown]
  - Haemorrhage [Unknown]
  - Arthralgia [Unknown]
  - Treatment noncompliance [Unknown]
